FAERS Safety Report 6691479-3 (Version None)
Quarter: 2010Q2

REPORT INFORMATION
  Report Type: 
  Country: None (occurrence: None)
  Receive Date: 20100414
  Receipt Date: 20090527
  Transmission Date: 20101027
  Serious: Yes (Other)
  Sender: FDA-Public Use
  Company Number: 09-243

PATIENT
  Age: 54 Year
  Sex: Female

DRUGS (2)
  1. ALEVE [Suspect]
     Indication: ARTHRALGIA
     Dosage: 880-1320 MG, WKLY, ORAL
     Route: 048
     Dates: start: 20070101
  2. ALEVE [Suspect]
     Indication: ARTHRALGIA
     Dosage: 880-1320 MG, WKLY, ORAL
     Route: 048
     Dates: start: 20070101

REACTIONS (1)
  - CONVULSION [None]
